FAERS Safety Report 19683776 (Version 1)
Quarter: 2021Q3

REPORT INFORMATION
  Report Type: Other
  Country: US (occurrence: US)
  Receive Date: 20210811
  Receipt Date: 20210811
  Transmission Date: 20211014
  Serious: Yes (Other)
  Sender: FDA-Public Use
  Company Number: US-ROCHE-2788106

PATIENT

DRUGS (5)
  1. 5 FLUOROURACIL [Suspect]
     Active Substance: FLUOROURACIL
     Indication: HEPATIC CANCER
     Dosage: DAYS 1?7
     Route: 042
  2. NIVOLUMAB [Suspect]
     Active Substance: NIVOLUMAB
     Indication: HEPATIC CANCER
     Route: 065
  3. PEGINTERFERON ALFA?2A. [Suspect]
     Active Substance: PEGINTERFERON ALFA-2A
     Indication: HEPATIC CANCER
     Dosage: DAY 1
     Route: 065
  4. CAPECITABINE. [Suspect]
     Active Substance: CAPECITABINE
     Indication: HEPATIC CANCER
     Dosage: 1?7
     Route: 048
  5. INTERFERON ALFA 2B [Suspect]
     Active Substance: INTERFERON ALFA-2B
     Indication: HEPATIC CANCER
     Dosage: DAYS 1, 3, 5, AND 7
     Route: 065

REACTIONS (20)
  - Appendicitis [Unknown]
  - Ileus [Unknown]
  - Cough [Unknown]
  - Muscle spasms [Unknown]
  - Rash [Unknown]
  - Thrombocytopenia [Unknown]
  - Pneumonia [Unknown]
  - Pneumothorax [Unknown]
  - Diarrhoea [Unknown]
  - Flank pain [Unknown]
  - Nausea [Unknown]
  - Neutropenia [Unknown]
  - Chills [Unknown]
  - Headache [Unknown]
  - Colitis [Unknown]
  - Pyrexia [Unknown]
  - Oedema [Unknown]
  - Fatigue [Unknown]
  - Neuralgia [Unknown]
  - Hypothyroidism [Unknown]
